FAERS Safety Report 10051526 (Version 1)
Quarter: 2014Q2

REPORT INFORMATION
  Report Type: Spontaneous
  Country: US (occurrence: US)
  Receive Date: 20140401
  Receipt Date: 20140401
  Transmission Date: 20141212
  Serious: Yes (Other)
  Sender: FDA-Public Use
  Company Number: US-ABBVIE-14P-163-1218751-00

PATIENT
  Age: 69 Year
  Sex: Female

DRUGS (4)
  1. HUMIRA [Suspect]
     Indication: PSORIASIS
     Dates: start: 201302, end: 201403
  2. ADDERALL [Concomitant]
     Indication: PRODUCT USED FOR UNKNOWN INDICATION
  3. ENALAPRIL [Concomitant]
     Indication: HYPERTENSION
  4. CLOBETASOL [Concomitant]
     Indication: PSORIASIS

REACTIONS (3)
  - Subclavian artery embolism [Recovering/Resolving]
  - Peripheral swelling [Recovering/Resolving]
  - Skin warm [Recovered/Resolved]
